FAERS Safety Report 7041194-1 (Version None)
Quarter: 2010Q4

REPORT INFORMATION
  Report Type: 
  Country: None (occurrence: None)
  Receive Date: 20101013
  Receipt Date: 20101006
  Transmission Date: 20110411
  Serious: Yes (Other)
  Sender: FDA-Public Use
  Company Number: BE-BAYER-201041731GPV

PATIENT
  Age: 55 Year
  Sex: Female

DRUGS (4)
  1. MOXIFLOXACIN HCL [Suspect]
     Indication: BRONCHOPNEUMONIA
     Dosage: TOTAL DAILY DOSE: 400 MG  UNIT DOSE: 400 MG
     Route: 048
     Dates: start: 20100925, end: 20100925
  2. ACETYLCYSTEINE [Concomitant]
  3. DUSPATALIN [Concomitant]
     Route: 048
  4. ACETAMINOPHEN [Concomitant]
     Dates: start: 20100925

REACTIONS (3)
  - HYPERVENTILATION [None]
  - RESPIRATORY DEPRESSION [None]
  - TREMOR [None]
